FAERS Safety Report 4354512-X (Version None)
Quarter: 2004Q2

REPORT INFORMATION
  Report Type: 
  Country: None (occurrence: None)
  Receive Date: 20040503
  Receipt Date: 20031206
  Transmission Date: 20050107
  Serious: Yes (Hospitalization, Other)
  Sender: FDA-Public Use
  Company Number: KII-2003-0009858

PATIENT
  Age: 56 Year
  Sex: Male
  Weight: 113 kg

DRUGS (5)
  1. MORPHINE SULFATE [Suspect]
  2. PROPOXYPHENE HCL AND ACETAMINOPHEN [Suspect]
  3. AMITRIPTYLINE HCL [Suspect]
  4. OTHER HYPNOTICS AND SEDATIVES (OTHER HYPNOTICS AND SEDATIVES) [Suspect]
     Dosage: 10 MG
  5. BENZODIAZEPINE DERIVATIVES (BENZODIAZEPINE DERIVATIVES) [Suspect]
     Dosage: 30 MG

REACTIONS (19)
  - ABNORMAL BEHAVIOUR [None]
  - AGITATION [None]
  - AREFLEXIA [None]
  - BLOOD PHOSPHORUS DECREASED [None]
  - BLOOD POTASSIUM DECREASED [None]
  - BLOOD PRESSURE DECREASED [None]
  - COMA [None]
  - ELECTROCARDIOGRAM QRS COMPLEX PROLONGED [None]
  - HEADACHE [None]
  - HYPERTENSION [None]
  - INTENTIONAL OVERDOSE [None]
  - MULTIPLE DRUG OVERDOSE [None]
  - NODAL RHYTHM [None]
  - PUPILLARY REFLEX IMPAIRED [None]
  - PYREXIA [None]
  - RESTLESSNESS [None]
  - RHONCHI [None]
  - SOMNOLENCE [None]
  - SUICIDE ATTEMPT [None]
